FAERS Safety Report 4645960-9 (Version None)
Quarter: 2005Q2

REPORT INFORMATION
  Report Type: 
  Country: None (occurrence: None)
  Receive Date: 20050425
  Receipt Date: 20050328
  Transmission Date: 20051028
  Serious: No
  Sender: FDA-Public Use
  Company Number: 200511061BCC

PATIENT
  Age: 31 Year
  Sex: Male
  Weight: 99.7913 kg

DRUGS (3)
  1. ASPIRIN [Suspect]
     Indication: MYALGIA
     Dosage: SEE IMAGE
     Route: 048
  2. ASPIRIN [Suspect]
     Indication: MYALGIA
     Dosage: SEE IMAGE
     Route: 048
     Dates: start: 20050301
  3. COATED ASPIRIN (ACETYLSALICYLIC ACID) [Suspect]
     Dosage: ORAL
     Route: 048

REACTIONS (4)
  - DISORIENTATION [None]
  - DRUG HYPERSENSITIVITY [None]
  - FALL [None]
  - PAIN [None]
